FAERS Safety Report 8374642-5 (Version None)
Quarter: 2012Q2

REPORT INFORMATION
  Report Type: 
  Country: None (occurrence: None)
  Receive Date: 20120521
  Receipt Date: 20110318
  Transmission Date: 20120825
  Serious: No
  Sender: FDA-Public Use
  Company Number: US-ASTRAZENECA-2011SE21442

PATIENT

DRUGS (2)
  1. PRILOSEC OTC [Suspect]
     Indication: DYSPEPSIA
     Dosage: UNKNOWN
     Route: 048
     Dates: start: 20110201
  2. RANITIDINE [Suspect]
     Dosage: UNKNOWN
     Route: 048
     Dates: start: 20110201

REACTIONS (3)
  - INCORRECT DRUG ADMINISTRATION DURATION [None]
  - MIDDLE INSOMNIA [None]
  - THROAT TIGHTNESS [None]
